FAERS Safety Report 5563293-3 (Version None)
Quarter: 2007Q4

REPORT INFORMATION
  Report Type: 
  Country: None (occurrence: None)
  Receive Date: 20071217
  Receipt Date: 20071205
  Transmission Date: 20080405
  Serious: Yes (Other)
  Sender: FDA-Public Use
  Company Number: GB-ROCHE-535743

PATIENT
  Age: 12 Year
  Sex: Female
  Weight: 10.5 kg

DRUGS (4)
  1. CEFTRIAXONE [Suspect]
     Indication: DRUG USE FOR UNKNOWN INDICATION
     Route: 042
     Dates: start: 20071121, end: 20071122
  2. METRONIDAZOLE HCL [Suspect]
     Indication: DRUG USE FOR UNKNOWN INDICATION
     Route: 042
     Dates: start: 20071121, end: 20071122
  3. AMOXICILLIN [Concomitant]
     Route: 050
     Dates: start: 20071114, end: 20071121
  4. GAVISCON [Concomitant]
     Route: 050

REACTIONS (2)
  - ALANINE AMINOTRANSFERASE ABNORMAL [None]
  - LIVER FUNCTION TEST ABNORMAL [None]
